FAERS Safety Report 15461249 (Version 2)
Quarter: 2018Q4

REPORT INFORMATION
  Report Type: Spontaneous
  Country: US (occurrence: US)
  Receive Date: 20181003
  Receipt Date: 20181116
  Transmission Date: 20190204
  Serious: Yes (Other)
  Sender: FDA-Public Use
  Company Number: US-UNITED THERAPEUTICS-UNT-2018-015438

PATIENT
  Sex: Female
  Weight: 54.88 kg

DRUGS (2)
  1. TYVASO [Suspect]
     Active Substance: TREPROSTINIL
     Dosage: UNK
  2. TYVASO [Suspect]
     Active Substance: TREPROSTINIL
     Indication: PULMONARY ARTERIAL HYPERTENSION
     Dosage: 18-54 MICROGRAMS, QID
     Dates: start: 20180907

REACTIONS (4)
  - Pulmonary hypertension [Unknown]
  - Cough [Unknown]
  - Oxygen saturation decreased [Unknown]
  - Hypoxia [Unknown]

NARRATIVE: CASE EVENT DATE: 2018
